FAERS Safety Report 13842466 (Version 2)
Quarter: 2017Q3

REPORT INFORMATION
  Report Type: Spontaneous
  Country: BR (occurrence: BR)
  Receive Date: 20170808
  Receipt Date: 20170817
  Transmission Date: 20171127
  Serious: Yes (Hospitalization, Other)
  Sender: FDA-Public Use
  Company Number: BR-AMGEN-BRASP2016009801

PATIENT
  Age: 70 Year
  Sex: Female
  Weight: 66 kg

DRUGS (7)
  1. SIMVASTATIN. [Concomitant]
     Active Substance: SIMVASTATIN
     Indication: BLOOD CHOLESTEROL INCREASED
     Dosage: 40 MG, DAILY (1 TABLET IN THE EVENING)
  2. OSTEOTRAT [Concomitant]
     Indication: BONE DISORDER
     Dosage: 600 MG 2X/DAY (1 TABLET AT LUNCH AND ANOTHER AT DINNER EVERY DAY)
  3. LOSARTAN. [Concomitant]
     Active Substance: LOSARTAN
     Indication: HYPERTENSION
     Dosage: 50 MG, 2X/DAY (1 TABLET EVERY 12 HOURS)
  4. METHOTREXATE. [Concomitant]
     Active Substance: METHOTREXATE
     Indication: RHEUMATOID ARTHRITIS
     Dosage: 150 MG, WEEKLY (3 TABLETS IN THE MORNING AND 3 TABLETS IN THE EVENING 1X IN THE WEEK)
  5. RISEDRONATE SODIUM. [Concomitant]
     Active Substance: RISEDRONATE SODIUM
     Indication: RHEUMATOID ARTHRITIS
     Dosage: 35 MG, WEEKLY (1 TABLET DAILY 1X/WEEK)
  6. FOLIC ACID. [Concomitant]
     Active Substance: FOLIC ACID
     Indication: IMMUNE SYSTEM DISORDER
     Dosage: 5 MG 2X/WEEK (1 TABLET 2X/WEEK)
  7. ENBREL [Suspect]
     Active Substance: ETANERCEPT
     Indication: RHEUMATOID ARTHRITIS
     Dosage: 50 MG, 1X/WEEK
     Route: 058
     Dates: start: 201301

REACTIONS (17)
  - Memory impairment [Recovered/Resolved]
  - Burning sensation [Recovered/Resolved]
  - Drug administration error [Unknown]
  - Petechiae [Not Recovered/Not Resolved]
  - Pain [Not Recovered/Not Resolved]
  - Purpura [Not Recovered/Not Resolved]
  - Hiatus hernia [Not Recovered/Not Resolved]
  - Erythema [Recovered/Resolved]
  - Muscular weakness [Not Recovered/Not Resolved]
  - Rash macular [Not Recovered/Not Resolved]
  - Hypoaesthesia [Not Recovered/Not Resolved]
  - Herpes zoster [Recovered/Resolved]
  - Skin discolouration [Not Recovered/Not Resolved]
  - Gallbladder enlargement [Recovered/Resolved]
  - Skin plaque [Not Recovered/Not Resolved]
  - Rash pruritic [Not Recovered/Not Resolved]
  - Limb mass [Recovered/Resolved]

NARRATIVE: CASE EVENT DATE: 2014
